FAERS Safety Report 7586084-0 (Version None)
Quarter: 2011Q2

REPORT INFORMATION
  Report Type: 
  Country: None (occurrence: None)
  Receive Date: 20110629
  Receipt Date: 20110629
  Transmission Date: 20111010
  Serious: No
  Sender: FDA-Public Use
  Company Number: None

PATIENT
  Age: 26 Year
  Sex: Female
  Weight: 49.8957 kg

DRUGS (1)
  1. GEODON [Suspect]
     Indication: BIPOLAR I DISORDER
     Dosage: 60MG 2X DAILY PO
     Route: 048
     Dates: start: 20100801, end: 20110301

REACTIONS (5)
  - MUSCLE SPASMS [None]
  - CHOLELITHIASIS [None]
  - MIGRAINE [None]
  - WEIGHT DECREASED [None]
  - LOSS OF CONSCIOUSNESS [None]
